FAERS Safety Report 6816251-2 (Version None)
Quarter: 2010Q2

REPORT INFORMATION
  Report Type: 
  Country: None (occurrence: None)
  Receive Date: 20100630
  Receipt Date: 20100622
  Transmission Date: 20101027
  Serious: Yes (Life-Threatening, Hospitalization)
  Sender: FDA-Public Use
  Company Number: 2010US002321

PATIENT
  Age: 81 Year
  Sex: Female

DRUGS (8)
  1. LEXISCAN [Suspect]
     Indication: SCAN MYOCARDIAL PERFUSION
     Dosage: 0.4 MG, TOTAL DOSE, IV NOS
     Route: 042
     Dates: start: 20100615, end: 20100615
  2. XANAX [Concomitant]
  3. VITAMIN D (COLECALCIFEROL) [Concomitant]
  4. OMEPRAZOLE [Concomitant]
  5. LISINOPRIL [Concomitant]
  6. LEVOTHYROXINE SODIUM [Concomitant]
  7. CRESTOR [Concomitant]
  8. COENZYME Q10 [Concomitant]

REACTIONS (1)
  - SUBARACHNOID HAEMORRHAGE [None]
